FAERS Safety Report 12810970 (Version 1)
Quarter: 2016Q4

REPORT INFORMATION
  Report Type: Spontaneous
  Country: US (occurrence: US)
  Receive Date: 20161005
  Receipt Date: 20161005
  Transmission Date: 20170207
  Serious: Yes (Other)
  Sender: FDA-Public Use
  Company Number: US-GLAXOSMITHKLINE-US2016GSK145305

PATIENT
  Age: 75 Year
  Sex: Male

DRUGS (1)
  1. ADVAIR HFA [Suspect]
     Active Substance: FLUTICASONE PROPIONATE\SALMETEROL XINAFOATE
     Indication: PRODUCT USED FOR UNKNOWN INDICATION

REACTIONS (4)
  - Escherichia infection [Unknown]
  - Prostate infection [Unknown]
  - Blood pressure abnormal [Unknown]
  - Urinary tract disorder [Unknown]

NARRATIVE: CASE EVENT DATE: 201602
